FAERS Safety Report 11280223 (Version 1)
Quarter: 2015Q3

REPORT INFORMATION
  Report Type: Spontaneous
  Country: US (occurrence: US)
  Receive Date: 20150717
  Receipt Date: 20150717
  Transmission Date: 20151125
  Serious: Yes (Other)
  Sender: FDA-Public Use
  Company Number: US-JNJFOC-20131217105

PATIENT
  Age: 68 Year
  Sex: Male

DRUGS (1)
  1. CLADRIBINE. [Suspect]
     Active Substance: CLADRIBINE
     Indication: HAIRY CELL LEUKAEMIA
     Dosage: 2-HOUR INTRAVENOUS INFUSION
     Route: 042

REACTIONS (13)
  - Fatigue [Unknown]
  - Chills [Unknown]
  - Cough [Unknown]
  - Diarrhoea [Unknown]
  - Stomatitis [Unknown]
  - Bronchospasm [Unknown]
  - Arthralgia [Unknown]
  - Neutropenia [Unknown]
  - Lymphopenia [Unknown]
  - Leukopenia [Unknown]
  - Hypoalbuminaemia [Unknown]
  - Incorrect dose administered [Unknown]
  - Thrombocytopenia [Unknown]
